FAERS Safety Report 19399498 (Version 1)
Quarter: 2021Q2

REPORT INFORMATION
  Report Type: Report from Study
  Country: US (occurrence: US)
  Receive Date: 20210610
  Receipt Date: 20210610
  Transmission Date: 20210717
  Serious: Yes (Other)
  Sender: FDA-Public Use
  Company Number: US-BIOGEN-2014BI078364

PATIENT
  Age: 54 Year
  Sex: Female

DRUGS (5)
  1. TECFIDERA [Suspect]
     Active Substance: DIMETHYL FUMARATE
     Route: 048
     Dates: start: 20130914
  2. TECFIDERA [Suspect]
     Active Substance: DIMETHYL FUMARATE
     Route: 048
     Dates: start: 20180726, end: 202103
  3. TECFIDERA [Suspect]
     Active Substance: DIMETHYL FUMARATE
     Route: 065
     Dates: start: 20130522
  4. TECFIDERA [Suspect]
     Active Substance: DIMETHYL FUMARATE
     Indication: MULTIPLE SCLEROSIS
     Route: 048
     Dates: start: 202103, end: 20210507
  5. TECFIDERA [Suspect]
     Active Substance: DIMETHYL FUMARATE
     Indication: MULTIPLE SCLEROSIS
     Route: 048
     Dates: start: 20130907, end: 20130913

REACTIONS (15)
  - Lymphocyte count decreased [Recovered/Resolved]
  - Nausea [Recovered/Resolved]
  - Dyspnoea [Unknown]
  - Psoriasis [Recovered/Resolved]
  - Flushing [Recovered/Resolved]
  - Abdominal pain upper [Recovered/Resolved]
  - Nasopharyngitis [Unknown]
  - Hepatic pain [Recovered/Resolved]
  - Cardiac flutter [Recovered/Resolved]
  - Memory impairment [Unknown]
  - Fatigue [Recovered/Resolved]
  - Headache [Recovered/Resolved]
  - White blood cell count decreased [Not Recovered/Not Resolved]
  - Cyst [Unknown]
  - Diarrhoea [Not Recovered/Not Resolved]

NARRATIVE: CASE EVENT DATE: 20130907
